FAERS Safety Report 8496302-2 (Version None)
Quarter: 2012Q2

REPORT INFORMATION
  Report Type: 
  Country: None (occurrence: None)
  Receive Date: 20120405
  Receipt Date: 20070102
  Transmission Date: 20120825
  Serious: Yes (Other)
  Sender: FDA-Public Use
  Company Number: PHHY2007US011378

PATIENT
  Age: 74 Year
  Sex: Male

DRUGS (1)
  1. LOTREL [Suspect]
     Indication: HYPERTENSION
     Dates: start: 20020101, end: 20060101

REACTIONS (1)
  - BLOOD PRESSURE DECREASED [None]
